FAERS Safety Report 25512440 (Version 1)
Quarter: 2025Q3

REPORT INFORMATION
  Report Type: Spontaneous
  Country: US (occurrence: US)
  Receive Date: 20250703
  Receipt Date: 20250703
  Transmission Date: 20251020
  Serious: No
  Sender: BRISTOL-MYERS SQUIBB COMPANY
  Company Number: US-BRISTOL-MYERS SQUIBB COMPANY-2025-092126

PATIENT
  Age: 64 Year
  Sex: Male
  Weight: 84.28 kg

DRUGS (3)
  1. ELIQUIS [Suspect]
     Active Substance: APIXABAN
     Indication: Pulmonary embolism
     Route: 048
     Dates: start: 20250318
  2. IBRANCE [Suspect]
     Active Substance: PALBOCICLIB
     Indication: Appendix cancer
     Route: 048
     Dates: start: 20250618
  3. IBRANCE [Suspect]
     Active Substance: PALBOCICLIB
     Indication: Colon cancer
     Route: 048
     Dates: start: 20250611

REACTIONS (1)
  - Asthenia [Unknown]
